FAERS Safety Report 8919171 (Version 2)
Quarter: 2013Q1

REPORT INFORMATION
  Report Type: Spontaneous
  Country: DE (occurrence: DE)
  Receive Date: 20121121
  Receipt Date: 20130322
  Transmission Date: 20140127
  Serious: Yes (Hospitalization)
  Sender: FDA-Public Use
  Company Number: DE-ELI_LILLY_AND_COMPANY-DE201211003945

PATIENT
  Age: 52 Year
  Sex: Male

DRUGS (5)
  1. FORSTEO [Suspect]
     Indication: OSTEOPOROSIS
     Dosage: UNK, QD
     Route: 058
     Dates: start: 20120813
  2. CORTISONE [Concomitant]
     Dosage: 15 MG, UNKNOWN
     Route: 065
  3. CORTISONE [Concomitant]
     Dosage: 10 MG, UNKNOWN
     Route: 065
  4. MARCUMAR [Concomitant]
     Dosage: UNK, UNKNOWN
     Route: 065
  5. ASS [Concomitant]
     Dosage: UNK UNK, UNKNOWN
     Route: 065

REACTIONS (2)
  - Cerebrovascular accident [Unknown]
  - Gait disturbance [Unknown]
